FAERS Safety Report 4916758-9 (Version None)
Quarter: 2006Q1

REPORT INFORMATION
  Report Type: 
  Country: None (occurrence: None)
  Receive Date: 20060216
  Receipt Date: 20060216
  Transmission Date: 20060701
  Serious: No
  Sender: FDA-Public Use
  Company Number: None

PATIENT
  Sex: Male
  Weight: 75.7507 kg

DRUGS (1)
  1. PACLITAXEL [Suspect]
     Indication: PROSTATE CANCER
     Dosage: 60MG/M2 =  107MG  WEEKLY  IV DRIP
     Route: 041
     Dates: start: 20051102, end: 20060208

REACTIONS (5)
  - BLOOD PRESSURE INCREASED [None]
  - ERYTHEMA [None]
  - HEART RATE DECREASED [None]
  - PRURITUS [None]
  - URTICARIA [None]
